FAERS Safety Report 6346049-3 (Version None)
Quarter: 2009Q3

REPORT INFORMATION
  Report Type: 
  Country: None (occurrence: None)
  Receive Date: 20090821
  Receipt Date: 20090617
  Transmission Date: 20100115
  Serious: No
  Sender: FDA-Public Use
  Company Number: 8047929

PATIENT
  Age: 25 Year
  Sex: Female
  Weight: 41.8 kg

DRUGS (6)
  1. CIMZIA [Suspect]
     Indication: CROHN'S DISEASE
     Dosage: SC
     Route: 058
     Dates: start: 20090212, end: 20090608
  2. PENTASA [Concomitant]
  3. ZONEGRAN [Concomitant]
  4. ZOFRAN [Concomitant]
  5. PHENERGAN [Concomitant]
  6. ACYCLOVIR [Concomitant]

REACTIONS (3)
  - CHEST DISCOMFORT [None]
  - CHEST PAIN [None]
  - PRURITUS [None]
